FAERS Safety Report 9320346 (Version 1)
Quarter: 2013Q2

REPORT INFORMATION
  Report Type: Spontaneous
  Country: US (occurrence: US)
  Receive Date: 20130530
  Receipt Date: 20130530
  Transmission Date: 20140414
  Serious: Yes (Hospitalization, Other)
  Sender: FDA-Public Use
  Company Number: US-ELI_LILLY_AND_COMPANY-US201305007152

PATIENT
  Age: 69 Year
  Sex: Male

DRUGS (1)
  1. HUMULIN REGULAR [Suspect]
     Indication: HYPERGLYCAEMIA
     Dosage: UNK
     Dates: start: 20130521

REACTIONS (2)
  - Near drowning [Recovered/Resolved]
  - Drug ineffective [Recovered/Resolved]
